FAERS Safety Report 4977403-X (Version None)
Quarter: 2006Q2

REPORT INFORMATION
  Report Type: 
  Country: None (occurrence: None)
  Receive Date: 20060413
  Receipt Date: 20060328
  Transmission Date: 20061013
  Serious: Yes (Hospitalization)
  Sender: FDA-Public Use
  Company Number: DSA_27807_2006

PATIENT
  Age: 45 Year
  Sex: Female

DRUGS (5)
  1. TAVOR [Suspect]
     Dosage: 6 MG ONCE PO
     Route: 048
     Dates: start: 20060221, end: 20060221
  2. DIAZEPAM [Suspect]
     Dosage: 100 MG ONCE PO
     Route: 048
     Dates: start: 20060221, end: 20060221
  3. CIATYL /00075802/ [Suspect]
     Dosage: 2 ML Q DAY PO
     Route: 048
  4. HALDOL [Suspect]
     Dosage: 80 GTT Q DAY PO
     Route: 048
  5. NEUROCIL /00038602/ [Suspect]
     Dosage: 150 GTT Q DAY PO
     Route: 048

REACTIONS (4)
  - APATHY [None]
  - DEPRESSED LEVEL OF CONSCIOUSNESS [None]
  - MULTIPLE DRUG OVERDOSE INTENTIONAL [None]
  - SUICIDE ATTEMPT [None]
